APPROVED DRUG PRODUCT: CHILDREN'S ALLEGRA HIVES
Active Ingredient: FEXOFENADINE HYDROCHLORIDE
Strength: 30MG/5ML **Federal Register determination that product was not discontinued or withdrawn for safety or effectiveness reasons**
Dosage Form/Route: SUSPENSION;ORAL
Application: N201373 | Product #002
Applicant: CHATTEM INC DBA SANOFI CONSUMER HEALTHCARE
Approved: Jan 24, 2011 | RLD: Yes | RS: No | Type: DISCN

PATENTS:
Patent 8933097 | Expires: Aug 2, 2030